FAERS Safety Report 21117524 (Version 2)
Quarter: 2023Q2

REPORT INFORMATION
  Report Type: Spontaneous
  Country: US (occurrence: US)
  Receive Date: 20220722
  Receipt Date: 20230526
  Transmission Date: 20230722
  Serious: No
  Sender: FDA-Public Use
  Company Number: US-PERRIGO-22US006848

PATIENT
  Age: 58 Year
  Sex: Male

DRUGS (1)
  1. MINOXIDIL [Suspect]
     Active Substance: MINOXIDIL
     Indication: Alopecia
     Dosage: 1/2 CAPFUL, QD TO BID
     Route: 061
     Dates: start: 20220411, end: 20220418

REACTIONS (5)
  - Application site vesicles [Recovered/Resolved]
  - Application site burn [Recovered/Resolved]
  - Application site exfoliation [Recovering/Resolving]
  - Pruritus [Recovered/Resolved]
  - Inappropriate schedule of product administration [Recovered/Resolved]

NARRATIVE: CASE EVENT DATE: 20220411
